FAERS Safety Report 12926619 (Version 1)
Quarter: 2016Q4

REPORT INFORMATION
  Report Type: Spontaneous
  Country: SE (occurrence: SE)
  Receive Date: 20161109
  Receipt Date: 20161109
  Transmission Date: 20170207
  Serious: Yes (Hospitalization)
  Sender: FDA-Public Use
  Company Number: SE-TEVA-709852ACC

PATIENT
  Age: 48 Year
  Sex: Male

DRUGS (4)
  1. PENTASA [Concomitant]
     Active Substance: MESALAMINE
  2. SERTRALINE [Concomitant]
     Active Substance: SERTRALINE HYDROCHLORIDE
  3. IMOVANE [Suspect]
     Active Substance: ZOPICLONE
     Dates: start: 20161012, end: 20161012
  4. OXASCAND [Suspect]
     Active Substance: OXAZEPAM
     Dates: start: 20161012, end: 20161012

REACTIONS (3)
  - Alcohol poisoning [Unknown]
  - Toxicity to various agents [Unknown]
  - Depressed level of consciousness [Unknown]

NARRATIVE: CASE EVENT DATE: 20161012
